FAERS Safety Report 9467557 (Version 1)
Quarter: 2013Q3

REPORT INFORMATION
  Report Type: Spontaneous
  Country: US (occurrence: US)
  Receive Date: 20130821
  Receipt Date: 20130821
  Transmission Date: 20140515
  Serious: No
  Sender: FDA-Public Use
  Company Number: US-MYLANLABS-2013S1014078

PATIENT
  Age: 77 Year
  Sex: Female
  Weight: 69.85 kg

DRUGS (1)
  1. BUDESONIDE CAPSULES [Suspect]
     Indication: COLITIS
     Route: 048
     Dates: start: 20130620, end: 20130623

REACTIONS (3)
  - Nervousness [Recovered/Resolved]
  - Insomnia [Not Recovered/Not Resolved]
  - Back pain [Not Recovered/Not Resolved]
